FAERS Safety Report 4460088-9 (Version None)
Quarter: 2004Q3

REPORT INFORMATION
  Report Type: 
  Country: None (occurrence: None)
  Receive Date: 20040928
  Receipt Date: 20031204
  Transmission Date: 20050211
  Serious: No
  Sender: FDA-Public Use
  Company Number: US-GLAXOSMITHKLINE-A0441995A

PATIENT
  Age: 75 Year
  Sex: Female

DRUGS (7)
  1. SEREVENT [Suspect]
     Indication: ASTHMA
     Dosage: 1PUFF TWICE PER DAY
     Route: 055
     Dates: start: 20031101
  2. FLONASE [Concomitant]
  3. THYROID MEDICATION [Concomitant]
  4. TICLID [Concomitant]
  5. ESTROGEN [Concomitant]
     Route: 067
  6. MULTIPLE VITAMIN [Concomitant]
  7. HERBAL MEDICATION [Concomitant]

REACTIONS (1)
  - PRODUCTIVE COUGH [None]
